FAERS Safety Report 10881980 (Version 1)
Quarter: 2015Q1

REPORT INFORMATION
  Report Type: Spontaneous
  Country: US (occurrence: None)
  Receive Date: 20150225
  Receipt Date: 20150225
  Transmission Date: 20150721
  Serious: No
  Sender: FDA-Public Use
  Company Number: None

PATIENT
  Age: 52 Year
  Sex: Female
  Weight: 72.58 kg

DRUGS (9)
  1. VENTOLIN [Concomitant]
     Active Substance: ALBUTEROL SULFATE
  2. LEVAQUIN [Suspect]
     Active Substance: LEVOFLOXACIN
     Indication: UPPER RESPIRATORY TRACT INFECTION
     Dosage: 1 PILL, ONCE DAILY, TAKEN BY MOUTH
     Route: 048
  3. CHERATUSIN [Concomitant]
  4. FLONASE [Concomitant]
     Active Substance: FLUTICASONE PROPIONATE
  5. MUCCINEX DM [Concomitant]
  6. PRE-LIEF [Concomitant]
  7. LEVAQUIN [Suspect]
     Active Substance: LEVOFLOXACIN
     Indication: BRONCHITIS
     Dosage: 1 PILL, ONCE DAILY, TAKEN BY MOUTH
     Route: 048
  8. CLARITIN [Concomitant]
     Active Substance: LORATADINE
  9. AUGMENTIN [Concomitant]
     Active Substance: AMOXICILLIN\CLAVULANATE POTASSIUM

REACTIONS (9)
  - Anxiety [None]
  - Confusional state [None]
  - Burning sensation [None]
  - Vision blurred [None]
  - Feeling abnormal [None]
  - Hypoaesthesia [None]
  - Panic reaction [None]
  - Depressed mood [None]
  - Sensory disturbance [None]

NARRATIVE: CASE EVENT DATE: 20150222
